FAERS Safety Report 19034392 (Version 1)
Quarter: 2021Q1

REPORT INFORMATION
  Report Type: Spontaneous
  Country: JP (occurrence: JP)
  Receive Date: 20210319
  Receipt Date: 20210319
  Transmission Date: 20210420
  Serious: Yes (Hospitalization)
  Sender: FDA-Public Use
  Company Number: JP-DSJP-DSJ-2021-106302

PATIENT
  Age: 81 Year
  Sex: Female

DRUGS (3)
  1. AMLODIPINE                         /00972402/ [Concomitant]
     Active Substance: AMLODIPINE BESYLATE
     Indication: HYPERTENSION
     Dosage: 5 MG, QD
     Route: 048
  2. SENNOSIDE                          /00571901/ [Concomitant]
     Active Substance: SENNOSIDES A AND B
     Indication: CONSTIPATION
     Dosage: UNK UNK, AS NEEDED
     Route: 048
  3. OLMESARTAN OD TABLETS ?DSEP? [Suspect]
     Active Substance: OLMESARTAN MEDOXOMIL
     Indication: HYPERTENSION
     Dosage: 10MG/DAY
     Route: 048
     Dates: start: 20190511, end: 20210227

REACTIONS (3)
  - Constipation [Unknown]
  - Hyponatraemia [Recovered/Resolved]
  - Vagus nerve disorder [Unknown]

NARRATIVE: CASE EVENT DATE: 20210222
